FAERS Safety Report 5279442-0 (Version None)
Quarter: 2007Q1

REPORT INFORMATION
  Report Type: 
  Country: None (occurrence: None)
  Receive Date: 20070328
  Receipt Date: 20070315
  Transmission Date: 20070707
  Serious: Yes (Hospitalization)
  Sender: FDA-Public Use
  Company Number: DE-ELI_LILLY_AND_COMPANY-DE200703003306

PATIENT
  Age: 54 Year
  Sex: Female

DRUGS (7)
  1. CYMBALTA [Suspect]
     Dosage: 30 MG, DAILY (1/D)
     Route: 048
     Dates: start: 20061022, end: 20061022
  2. CYMBALTA [Suspect]
     Dosage: 60 MG, DAILY (1/D)
     Route: 048
     Dates: start: 20061023, end: 20061030
  3. CYMBALTA [Suspect]
     Dosage: 90 MG, DAILY (1/D)
     Route: 048
     Dates: start: 20061031
  4. SOLIAN [Concomitant]
     Dosage: 400 MG, DAILY (1/D)
     Route: 048
     Dates: start: 20040101, end: 20061026
  5. SOLIAN [Concomitant]
     Dosage: 600 MG, DAILY (1/D)
     Route: 048
     Dates: start: 20061027, end: 20061106
  6. XIMOVAN [Concomitant]
     Dosage: 7.5 MG, DAILY (1/D)
     Route: 048
  7. ASPIRIN [Concomitant]
     Dosage: 100 MG, DAILY (1/D)
     Route: 048

REACTIONS (1)
  - AKATHISIA [None]
